FAERS Safety Report 11058296 (Version 1)
Quarter: 2015Q2

REPORT INFORMATION
  Report Type: Spontaneous
  Country: US (occurrence: None)
  Receive Date: 20150420
  Receipt Date: 20150420
  Transmission Date: 20150821
  Serious: No
  Sender: FDA-Public Use
  Company Number: AEGR001157

PATIENT
  Age: 70 Year
  Sex: Male
  Weight: 90.7 kg

DRUGS (1)
  1. JUXTAPID [Suspect]
     Active Substance: LOMITAPIDE MESYLATE
     Indication: TYPE IIA HYPERLIPIDAEMIA
     Route: 048
     Dates: start: 20150119, end: 20150226

REACTIONS (4)
  - Pollakiuria [None]
  - Weight decreased [None]
  - Defaecation urgency [None]
  - Abdominal discomfort [None]

NARRATIVE: CASE EVENT DATE: 201501
